FAERS Safety Report 20332803 (Version 1)
Quarter: 2022Q1

REPORT INFORMATION
  Report Type: Report from Study
  Country: US (occurrence: US)
  Receive Date: 20220113
  Receipt Date: 20220113
  Transmission Date: 20220423
  Serious: No
  Sender: FDA-Public Use
  Company Number: US-Ipsen Biopharmaceuticals, Inc.-2022-00505

PATIENT
  Age: 63 Year
  Sex: Male

DRUGS (1)
  1. SOMATULINE DEPOT [Suspect]
     Active Substance: LANREOTIDE ACETATE
     Indication: Product used for unknown indication
     Dosage: 120 MG, SUBCUTANEOUS
     Route: 058
     Dates: start: 202106

REACTIONS (3)
  - Feeling abnormal [Unknown]
  - Diarrhoea [Unknown]
  - Injection site pain [Unknown]
